FAERS Safety Report 4721271-8 (Version None)
Quarter: 2005Q3

REPORT INFORMATION
  Report Type: 
  Country: None (occurrence: None)
  Receive Date: 20050722
  Receipt Date: 20050713
  Transmission Date: 20060218
  Serious: Yes (Other)
  Sender: FDA-Public Use
  Company Number: PHEH2005US07778

PATIENT
  Age: 47 Year
  Sex: Female

DRUGS (7)
  1. PAXIL [Concomitant]
  2. LIPITOR [Concomitant]
  3. PROTONIX [Concomitant]
  4. HYDROCHLOROTHIAZID [Concomitant]
  5. ZELNORM [Suspect]
     Indication: IRRITABLE BOWEL SYNDROME
     Dosage: 2 MG, UNK
     Route: 048
     Dates: start: 20050501, end: 20050501
  6. AVAPRO [Concomitant]
  7. ESTROSTEP [Concomitant]

REACTIONS (3)
  - CONSTIPATION [None]
  - HAEMORRHOIDS [None]
  - RECTAL HAEMORRHAGE [None]
